FAERS Safety Report 23689265 (Version 2)
Quarter: 2024Q3

REPORT INFORMATION
  Report Type: Report from Study
  Country: US (occurrence: US)
  Receive Date: 20240330
  Receipt Date: 20240707
  Transmission Date: 20241016
  Serious: Yes (Other)
  Sender: DR REDDYS
  Company Number: US-E2BLSMVVAL-CLI/USA/24/0004854

PATIENT
  Age: 24 Year
  Sex: Female

DRUGS (1)
  1. ACCUTANE [Suspect]
     Active Substance: ISOTRETINOIN
     Indication: Acne
     Route: 065
     Dates: start: 20240216, end: 20240316

REACTIONS (2)
  - Exposure during pregnancy [Unknown]
  - Abortion [Unknown]

NARRATIVE: CASE EVENT DATE: 20240316
